FAERS Safety Report 13750269 (Version 1)
Quarter: 2017Q3

REPORT INFORMATION
  Report Type: Spontaneous
  Country: US (occurrence: US)
  Receive Date: 20170713
  Receipt Date: 20170713
  Transmission Date: 20171127
  Serious: No
  Sender: FDA-Public Use
  Company Number: US-ASTELLAS-2016US028357

PATIENT
  Age: 81 Year
  Sex: Female

DRUGS (2)
  1. MYRBETRIQ [Suspect]
     Active Substance: MIRABEGRON
     Route: 048
     Dates: start: 201606, end: 201607
  2. MYRBETRIQ [Suspect]
     Active Substance: MIRABEGRON
     Indication: PRODUCT USED FOR UNKNOWN INDICATION
     Route: 048
     Dates: start: 201604, end: 201605

REACTIONS (4)
  - Pollakiuria [Not Recovered/Not Resolved]
  - Nocturia [Not Recovered/Not Resolved]
  - Therapy cessation [Unknown]
  - Drug ineffective [Unknown]

NARRATIVE: CASE EVENT DATE: 201604
